FAERS Safety Report 14151893 (Version 1)
Quarter: 2017Q4

REPORT INFORMATION
  Report Type: Spontaneous
  Country: US (occurrence: US)
  Receive Date: 20171101
  Receipt Date: 20171101
  Transmission Date: 20180321
  Serious: Yes (Other)
  Sender: FDA-Public Use
  Company Number: None

PATIENT
  Age: 82 Year
  Sex: Female
  Weight: 62.55 kg

DRUGS (9)
  1. VITAMIN D [Concomitant]
     Active Substance: CHOLECALCIFEROL
  2. VITAMIN B12 [Concomitant]
     Active Substance: CYANOCOBALAMIN
  3. ESTRACE [Concomitant]
     Active Substance: ESTRADIOL
  4. PROLIA [Suspect]
     Active Substance: DENOSUMAB
     Indication: OSTEOPOROSIS
     Route: 042
  5. PAROXETINE. [Concomitant]
     Active Substance: PAROXETINE
  6. GABAPENTIN. [Concomitant]
     Active Substance: GABAPENTIN
  7. LOSARTAN. [Concomitant]
     Active Substance: LOSARTAN
  8. SIMVISTATIN [Concomitant]
     Active Substance: SIMVASTATIN
  9. LO-DOSE ASPIRIN [Concomitant]

REACTIONS (5)
  - Pain [None]
  - Intraocular pressure increased [None]
  - Toothache [None]
  - Full blood count abnormal [None]
  - Tooth disorder [None]
